FAERS Safety Report 8391519-X (Version None)
Quarter: 2012Q2

REPORT INFORMATION
  Report Type: 
  Country: None (occurrence: None)
  Receive Date: 20120515
  Receipt Date: 20120507
  Transmission Date: 20120825
  Serious: Yes (Hospitalization)
  Sender: FDA-Public Use
  Company Number: 2012SP024494

PATIENT
  Age: 42 Year
  Weight: 84 kg

DRUGS (6)
  1. INVIRASE [Concomitant]
  2. PEGINTERFERON ALFA-2B [Suspect]
     Indication: HEPATITIS C
     Dosage: 150 MCG; QW; SC, 80 MCG; QW; SC
     Route: 058
     Dates: start: 20090216
  3. FLUCONAZOLE [Concomitant]
  4. COPEGUS [Suspect]
     Indication: HEPATITIS C
     Dosage: 1200 MG;QD;PO, 800 MG;QD;PO
     Route: 048
     Dates: start: 20090216
  5. METHADONE HYDROCHLORIDE [Concomitant]
  6. KALETRA [Concomitant]

REACTIONS (2)
  - HAEMOGLOBIN DECREASED [None]
  - DISTURBANCE IN ATTENTION [None]
